FAERS Safety Report 12076782 (Version 1)
Quarter: 2016Q1

REPORT INFORMATION
  Report Type: Report from Study
  Country: NL (occurrence: NL)
  Receive Date: 20160215
  Receipt Date: 20160215
  Transmission Date: 20160526
  Serious: Yes (Death, Other)
  Sender: FDA-Public Use
  Company Number: NL-AMGEN-NLDSL2016016953

PATIENT
  Age: 91 Year
  Sex: Male

DRUGS (1)
  1. ARANESP [Suspect]
     Active Substance: DARBEPOETIN ALFA
     Indication: NEPHROGENIC ANAEMIA
     Dosage: 130 MUG,(200MCG/ML, 0.65ML) Q4WK
     Route: 058

REACTIONS (2)
  - Intentional product misuse [Unknown]
  - Death [Fatal]

NARRATIVE: CASE EVENT DATE: 20160123
